FAERS Safety Report 4490497-3 (Version None)
Quarter: 2004Q4

REPORT INFORMATION
  Report Type: 
  Country: None (occurrence: None)
  Receive Date: 20041028
  Receipt Date: 20041022
  Transmission Date: 20050328
  Serious: Yes (Death)
  Sender: FDA-Public Use
  Company Number: 04H-114-0278457-00

PATIENT
  Age: 70 Year
  Sex: Male

DRUGS (4)
  1. NEOSTIGMINE METHYLSULFATE INJECTION (NEOSTIGMINE) (NEOSTIGMINE) [Suspect]
     Indication: CONSTIPATION
     Dosage: 0.6 MG/HR
  2. ENTERAL WATER [Concomitant]
  3. MAGNESIUM OXIDE [Concomitant]
  4. LACTULOSE [Concomitant]

REACTIONS (3)
  - DIVERTICULAR PERFORATION [None]
  - MULTI-ORGAN FAILURE [None]
  - SEPSIS [None]
